FAERS Safety Report 8099448-6 (Version None)
Quarter: 2012Q1

REPORT INFORMATION
  Report Type: 
  Country: None (occurrence: None)
  Receive Date: 20120129
  Receipt Date: 20111005
  Transmission Date: 20120608
  Serious: No
  Sender: FDA-Public Use
  Company Number: US-ABBOTT-11P-163-0861670-00

PATIENT
  Age: 48 Year
  Sex: Male

DRUGS (9)
  1. HUMIRA [Suspect]
     Indication: PSORIATIC ARTHROPATHY
     Dates: start: 20110930
  2. ASPIRIN [Concomitant]
     Indication: CARDIAC DISORDER
     Dosage: LOW DOSE DAILY
  3. METHOTREXATE [Concomitant]
     Indication: ARTHRITIS
  4. CADUET [Concomitant]
     Indication: BLOOD CHOLESTEROL
     Dosage: DAILY
  5. INDOMETHACIN [Concomitant]
     Indication: ARTHRITIS
  6. UROXATRAL [Concomitant]
     Indication: URINARY TRACT DISORDER
     Dosage: DAILY
  7. ASPIRIN [Concomitant]
     Indication: BLOOD PRESSURE
  8. DIOVAN [Concomitant]
     Indication: HYPERTENSION
     Dosage: DAILY
  9. METOPROLOL TARTRATE [Concomitant]
     Indication: HYPERTENSION
     Dosage: DAILY

REACTIONS (1)
  - INJECTION SITE PAIN [None]
